FAERS Safety Report 4906420-0 (Version None)
Quarter: 2006Q1

REPORT INFORMATION
  Report Type: 
  Country: None (occurrence: None)
  Receive Date: 20060206
  Receipt Date: 20060130
  Transmission Date: 20060701
  Serious: Yes (Life-Threatening)
  Sender: FDA-Public Use
  Company Number: 220528

PATIENT
  Age: 43 Year
  Sex: Female
  Weight: 77.1 kg

DRUGS (8)
  1. XOLAIR (OMALIZUMAB) PWDR + SOLVENT, INJECTION SOLN, 150MG [Suspect]
     Indication: ASTHMA
     Dosage: 300 MG, Q2W, SUBCUTANEOUS
     Route: 058
     Dates: start: 20051202, end: 20051215
  2. CLARINEX [Concomitant]
  3. SINGULAIR [Concomitant]
  4. SPIRIVA [Concomitant]
  5. ALBUTEROL (ALBUTEROL/ALBUTEROL SULFATE) [Concomitant]
  6. PREDNISONE [Concomitant]
  7. FORADIL [Concomitant]
  8. NASONEX [Concomitant]

REACTIONS (5)
  - ANAPHYLACTIC REACTION [None]
  - CHEST DISCOMFORT [None]
  - FLUSHING [None]
  - URTICARIA [None]
  - WHEEZING [None]
